FAERS Safety Report 16741018 (Version 1)
Quarter: 2019Q4

REPORT INFORMATION
  Report Type: Spontaneous
  Country: US (occurrence: US)
  Receive Date: 20190826
  Receipt Date: 20190826
  Transmission Date: 20200122
  Serious: Yes (Hospitalization)
  Sender: FDA-Public Use
  Company Number: None

PATIENT
  Sex: Male

DRUGS (3)
  1. SPRYCEL [Suspect]
     Active Substance: DASATINIB
     Indication: CHRONIC MYELOID LEUKAEMIA
     Route: 048
     Dates: start: 20180313
  2. VITAMIN D3, BAYER ADV, FUROSEMIDE [Concomitant]
  3. METFORMIN, ATORVASATIN, LEVOTHYROXINE [Concomitant]

REACTIONS (1)
  - Hospitalisation [None]
